FAERS Safety Report 24107723 (Version 1)
Quarter: 2024Q3

REPORT INFORMATION
  Report Type: Other
  Country: CN (occurrence: CN)
  Receive Date: 20240718
  Receipt Date: 20240718
  Transmission Date: 20241016
  Serious: Yes (Other)
  Sender: QILU PHARMACEUTICAL
  Company Number: CN-QILU PHARMACEUTICAL (HAINAN) CO.  LTD.-QLH-000168-2024

PATIENT
  Age: 61 Year
  Sex: Male
  Weight: 53 kg

DRUGS (6)
  1. OXALIPLATIN [Suspect]
     Active Substance: OXALIPLATIN
     Indication: Colon cancer
     Dosage: 125 MG ONCE DAILY
     Route: 041
     Dates: start: 20240607, end: 20240607
  2. FLUOROURACIL [Suspect]
     Active Substance: FLUOROURACIL
     Indication: Colon cancer
     Dosage: 0.58 GRAMS ONCE DAILY
     Route: 041
     Dates: start: 20240607, end: 20240607
  3. FLUOROURACIL [Suspect]
     Active Substance: FLUOROURACIL
     Dosage: 1.75 GRAMS ONCE DAILY
     Dates: start: 20240607, end: 20240608
  4. DEXTROSE [Concomitant]
     Active Substance: DEXTROSE\DEXTROSE MONOHYDRATE
     Indication: Colon cancer
     Dosage: 250 ML
     Route: 042
     Dates: start: 20240607, end: 20240607
  5. SODIUM CHLORIDE [Concomitant]
     Active Substance: SODIUM CHLORIDE
     Indication: Colon cancer
     Dosage: 50 ML
     Route: 042
     Dates: start: 20240607, end: 20240607
  6. SODIUM CHLORIDE [Concomitant]
     Active Substance: SODIUM CHLORIDE
     Dosage: 150 ML ONCE DAILY
     Dates: start: 20240607, end: 20240608

REACTIONS (1)
  - Hyperammonaemia [Recovered/Resolved]

NARRATIVE: CASE EVENT DATE: 20240609
